FAERS Safety Report 17493507 (Version 1)
Quarter: 2020Q1

REPORT INFORMATION
  Report Type: Spontaneous
  Country: US (occurrence: US)
  Receive Date: 20200303
  Receipt Date: 20200303
  Transmission Date: 20200409
  Serious: No
  Sender: FDA-Public Use
  Company Number: US-AMNEAL PHARMACEUTICALS-2019-IPXL-00836

PATIENT
  Sex: Female

DRUGS (1)
  1. RYTARY [Suspect]
     Active Substance: CARBIDOPA\LEVODOPA
     Indication: PARKINSON^S DISEASE
     Dosage: 3 DOSAGE FORM, TID, 36.25/145 MG
     Route: 048
     Dates: end: 201903

REACTIONS (6)
  - Gait inability [Unknown]
  - Fall [Unknown]
  - Feeling drunk [Unknown]
  - Impaired driving ability [Unknown]
  - Aphasia [Unknown]
  - Memory impairment [Unknown]
